FAERS Safety Report 19420444 (Version 3)
Quarter: 2021Q3

REPORT INFORMATION
  Report Type: Spontaneous
  Country: US (occurrence: US)
  Receive Date: 20210615
  Receipt Date: 20210823
  Transmission Date: 20211014
  Serious: Yes (Death, Hospitalization)
  Sender: FDA-Public Use
  Company Number: NVSC2021US134603

PATIENT
  Age: 62 Year
  Sex: Male

DRUGS (2)
  1. ENTRESTO [Suspect]
     Active Substance: SACUBITRIL\VALSARTAN
     Indication: CARDIAC FAILURE CONGESTIVE
     Dosage: UNK, HAD FOR 4 YEARS
     Route: 065
  2. ENTRESTO [Suspect]
     Active Substance: SACUBITRIL\VALSARTAN
     Dosage: 1 DF, BID(97/103 MG)
     Route: 048
     Dates: start: 20190213, end: 20210123

REACTIONS (7)
  - Cardiac arrest [Fatal]
  - Fatigue [Fatal]
  - Acute respiratory failure [Fatal]
  - Dyspnoea [Fatal]
  - Brain injury [Fatal]
  - COVID-19 [Fatal]
  - Quality of life decreased [Unknown]

NARRATIVE: CASE EVENT DATE: 20210116
